FAERS Safety Report 10663139 (Version 1)
Quarter: 2014Q4

REPORT INFORMATION
  Report Type: Spontaneous
  Country: US (occurrence: US)
  Receive Date: 20141218
  Receipt Date: 20141218
  Transmission Date: 20150529
  Serious: No
  Sender: FDA-Public Use
  Company Number: US-SHIONOGI, INC-2014000192

PATIENT
  Age: 17 Year
  Sex: Female
  Weight: 45.4 kg

DRUGS (4)
  1. LINEZOLID. [Concomitant]
     Active Substance: LINEZOLID
     Indication: INFECTION
     Dosage: DOSAGE FORM: UNSPECIFIED
     Route: 065
  2. DORIBAX [Suspect]
     Active Substance: DORIPENEM
     Indication: INFECTION
     Route: 042
     Dates: start: 20140107
  3. CEFOTAXIME [Concomitant]
     Active Substance: CEFOTAXIME\CEFOTAXIME SODIUM
     Indication: BACTERIAL INFECTION
     Dosage: DOSAGE FORM: UNSPECIFIED
     Route: 065
  4. DORIBAX [Suspect]
     Active Substance: DORIPENEM
     Indication: CYSTIC FIBROSIS
     Route: 042
     Dates: start: 20140107

REACTIONS (3)
  - Off label use [Unknown]
  - Drug administered to patient of inappropriate age [Unknown]
  - Prescribed overdose [Unknown]

NARRATIVE: CASE EVENT DATE: 20140107
